FAERS Safety Report 4405793-5 (Version None)
Quarter: 2004Q3

REPORT INFORMATION
  Report Type: 
  Country: None (occurrence: None)
  Receive Date: 20040723
  Receipt Date: 20031209
  Transmission Date: 20050211
  Serious: Yes (Hospitalization)
  Sender: FDA-Public Use
  Company Number: US-GLAXOSMITHKLINE-A0443057A

PATIENT
  Age: 51 Year
  Sex: Female
  Weight: 153.2 kg

DRUGS (12)
  1. AVANDIA [Suspect]
     Dosage: 4MG PER DAY
     Route: 048
     Dates: start: 20000705, end: 20011119
  2. LEVOXYL [Concomitant]
     Route: 048
  3. SYNTHROID [Concomitant]
     Dosage: .75MG PER DAY
     Route: 048
  4. NORVASC [Concomitant]
     Dosage: 10MG PER DAY
     Route: 048
  5. NULYTELY [Concomitant]
  6. SEREVENT [Concomitant]
     Dosage: 2PUFF TWICE PER DAY
     Route: 055
  7. FLOVENT [Concomitant]
     Dosage: 2PUFF TWICE PER DAY
  8. ALBUTEROL [Concomitant]
  9. AMARYL [Concomitant]
  10. GLUCOPHAGE [Concomitant]
  11. IBUPROFEN [Concomitant]
  12. PRINIVIL [Concomitant]
     Route: 048

REACTIONS (9)
  - CARDIAC FAILURE CONGESTIVE [None]
  - CARDIOMEGALY [None]
  - COR PULMONALE [None]
  - COUGH [None]
  - DYSPNOEA [None]
  - HYPOXIA [None]
  - OEDEMA [None]
  - PULMONARY HYPERTENSION [None]
  - WHEEZING [None]
